FAERS Safety Report 8167555-5 (Version None)
Quarter: 2012Q1

REPORT INFORMATION
  Report Type: 
  Country: None (occurrence: None)
  Receive Date: 20120221
  Receipt Date: 20120203
  Transmission Date: 20120608
  Serious: No
  Sender: FDA-Public Use
  Company Number: OPER20120061

PATIENT
  Age: 56 Year
  Sex: Male

DRUGS (1)
  1. OPANA ER [Suspect]
     Indication: PRODUCT USED FOR UNKNOWN INDICATION
     Dosage: 80 MG, 2 IN 1 D, ORAL
     Route: 048
     Dates: end: 20120120

REACTIONS (1)
  - WITHDRAWAL SYNDROME [None]
